FAERS Safety Report 4283790-0 (Version None)
Quarter: 2004Q1

REPORT INFORMATION
  Report Type: 
  Country: None (occurrence: None)
  Receive Date: 20040115
  Receipt Date: 20030305
  Transmission Date: 20041129
  Serious: Yes (Other)
  Sender: FDA-Public Use
  Company Number: NSADSS2002041704

PATIENT
  Age: 53 Year
  Sex: Female
  Weight: 62.5964 kg

DRUGS (4)
  1. DOXIL [Suspect]
     Indication: OVARIAN CANCER
     Dosage: 70 MG, 1 IN 4 WEEK, INTRAVENOUS DRIP
     Route: 041
     Dates: start: 20020725, end: 20020823
  2. LEVOXYL [Concomitant]
  3. GRANISETRON (GRANISETRON) [Concomitant]
  4. DEXAMETHASONE [Concomitant]

REACTIONS (2)
  - CONDITION AGGRAVATED [None]
  - RASH ERYTHEMATOUS [None]
